FAERS Safety Report 24087550 (Version 1)
Quarter: 2024Q3

REPORT INFORMATION
  Report Type: Spontaneous
  Country: US (occurrence: US)
  Receive Date: 20240714
  Receipt Date: 20240714
  Transmission Date: 20241016
  Serious: Yes (Hospitalization)
  Sender: PRINSTON PHARMACEUTICAL
  Company Number: US-PRINSTON PHARMACEUTICAL INC.-2024PRN00271

PATIENT
  Age: 48 Year
  Sex: Female

DRUGS (2)
  1. PHENTERMINE HYDROCHLORIDE [Suspect]
     Active Substance: PHENTERMINE HYDROCHLORIDE
     Indication: Weight decreased
     Dosage: 37.5 MG, 1X/DAY
  2. VALSARTAN [Concomitant]
     Active Substance: VALSARTAN
     Dosage: 40 MG, 1X/DAY

REACTIONS (1)
  - Colitis ischaemic [Recovered/Resolved]
